FAERS Safety Report 16196799 (Version 1)
Quarter: 2019Q2

REPORT INFORMATION
  Report Type: Spontaneous
  Country: AU (occurrence: AU)
  Receive Date: 20190415
  Receipt Date: 20190415
  Transmission Date: 20190711
  Serious: Yes (Other)
  Sender: FDA-Public Use
  Company Number: AU-MYLANLABS-2019M1028731

PATIENT
  Sex: Female

DRUGS (1)
  1. DENPAX [Suspect]
     Active Substance: FENTANYL
     Indication: CANCER PAIN
     Dosage: UNK

REACTIONS (4)
  - Wrong technique in product usage process [Unknown]
  - Breakthrough pain [Unknown]
  - Product adhesion issue [Unknown]
  - Drug ineffective [Unknown]
